FAERS Safety Report 7916619-7 (Version None)
Quarter: 2011Q4

REPORT INFORMATION
  Report Type: 
  Country: None (occurrence: None)
  Receive Date: 20111116
  Receipt Date: 20111110
  Transmission Date: 20120403
  Serious: No
  Sender: FDA-Public Use
  Company Number: US-PFIZER INC-2011253994

PATIENT
  Sex: Female

DRUGS (1)
  1. SUTENT [Suspect]
     Indication: NEUROENDOCRINE CARCINOMA
     Dosage: 37.5 MG, 1X/DAY
     Dates: start: 20111007

REACTIONS (6)
  - GASTROOESOPHAGEAL REFLUX DISEASE [None]
  - AGEUSIA [None]
  - DECREASED APPETITE [None]
  - STOMATITIS [None]
  - WEIGHT DECREASED [None]
  - DIARRHOEA [None]
